FAERS Safety Report 13129235 (Version 1)
Quarter: 2017Q1

REPORT INFORMATION
  Report Type: Other
  Country: DE (occurrence: DE)
  Receive Date: 20170119
  Receipt Date: 20170119
  Transmission Date: 20170428
  Serious: No
  Sender: FDA-Public Use
  Company Number: DE-LUPIN PHARMACEUTICALS INC.-E2B_00005530

PATIENT
  Sex: Male

DRUGS (4)
  1. EZETROL [Suspect]
     Active Substance: EZETIMIBE
     Indication: HYPERLIPIDAEMIA
     Route: 048
     Dates: start: 2014
  2. FENOFIBRATE. [Suspect]
     Active Substance: FENOFIBRATE
     Indication: HYPERLIPIDAEMIA
     Route: 048
     Dates: start: 2014
  3. ATORVASTATIN [Suspect]
     Active Substance: ATORVASTATIN
     Indication: HYPERLIPIDAEMIA
     Route: 048
     Dates: start: 2013
  4. SIMVASTATIN. [Suspect]
     Active Substance: SIMVASTATIN
     Indication: HYPERLIPIDAEMIA
     Route: 048
     Dates: start: 2013

REACTIONS (1)
  - Myalgia [Recovered/Resolved]

NARRATIVE: CASE EVENT DATE: 2014
